FAERS Safety Report 18658810 (Version 1)
Quarter: 2020Q4

REPORT INFORMATION
  Report Type: Spontaneous
  Country: CN (occurrence: CN)
  Receive Date: 20201223
  Receipt Date: 20201223
  Transmission Date: 20210114
  Serious: Yes (Other)
  Sender: FDA-Public Use
  Company Number: CN-PFIZER INC-2020503924

PATIENT
  Age: 73 Year
  Sex: Female
  Weight: 45 kg

DRUGS (1)
  1. TAZOCIN [Suspect]
     Active Substance: PIPERACILLIN SODIUM\TAZOBACTAM SODIUM
     Indication: BILE DUCT STONE
     Dosage: 4.5 G, 3X/DAY
     Route: 041
     Dates: start: 20201111, end: 20201126

REACTIONS (3)
  - Off label use [Unknown]
  - Hyperpyrexia [Recovered/Resolved]
  - Pyrexia [Recovered/Resolved]

NARRATIVE: CASE EVENT DATE: 20201111
